FAERS Safety Report 11659662 (Version 2)
Quarter: 2015Q4

REPORT INFORMATION
  Report Type: Spontaneous
  Country: FR (occurrence: FR)
  Receive Date: 20151026
  Receipt Date: 20151209
  Transmission Date: 20160304
  Serious: Yes (Hospitalization)
  Sender: FDA-Public Use
  Company Number: FR-PFIZER INC-2015351656

PATIENT
  Age: 82 Year
  Sex: Female

DRUGS (2)
  1. ZYVOXID [Suspect]
     Active Substance: LINEZOLID
     Indication: INFECTION
     Dosage: 2 DF, DAILY
     Route: 048
     Dates: start: 20150710, end: 20150716
  2. FUCIDINE [Suspect]
     Active Substance: FUSIDIC ACID
     Indication: INFECTION
     Dosage: 1500 MG, DAILY
     Route: 048
     Dates: start: 20150623, end: 20150716

REACTIONS (4)
  - Thrombocytopenia [Recovered/Resolved]
  - Blood bilirubin increased [Recovered/Resolved]
  - Anaemia [Recovered/Resolved]
  - Bilirubin conjugated increased [Recovered/Resolved]

NARRATIVE: CASE EVENT DATE: 20150709
